FAERS Safety Report 22655064 (Version 1)
Quarter: 2023Q2

REPORT INFORMATION
  Report Type: Spontaneous
  Country: US (occurrence: None)
  Receive Date: 20230628
  Receipt Date: 20230628
  Transmission Date: 20230721
  Serious: No
  Sender: FDA-Public Use
  Company Number: None

PATIENT
  Age: 66 Year
  Sex: Female

DRUGS (1)
  1. SELENIUM [Suspect]
     Active Substance: SELENIUM

REACTIONS (3)
  - Hypoaesthesia [None]
  - Paraesthesia [None]
  - Central nervous system lesion [None]

NARRATIVE: CASE EVENT DATE: 20230628
